FAERS Safety Report 5148475-7 (Version None)
Quarter: 2006Q4

REPORT INFORMATION
  Report Type: 
  Country: None (occurrence: None)
  Receive Date: 20061107
  Receipt Date: 20061025
  Transmission Date: 20070319
  Serious: Yes (Life-Threatening)
  Sender: FDA-Public Use
  Company Number: AND_0464_2006

PATIENT
  Age: 64 Year
  Sex: Male
  Weight: 90 kg

DRUGS (9)
  1. METFORMIN [Suspect]
     Indication: DRUG USE FOR UNKNOWN INDICATION
     Dosage: 1 G BID PO
     Route: 048
     Dates: start: 20051201
  2. IBUPROFEN [Suspect]
     Indication: NECK PAIN
     Dosage: DF TP
     Route: 061
     Dates: start: 20051201
  3. ASPIRIN [Concomitant]
  4. ATORVASTATIN CALCIUM [Concomitant]
  5. DILTIAZEM HCL [Concomitant]
  6. ENALAPRIL MALEATE [Concomitant]
  7. ISMN [Concomitant]
  8. NICORANDIL [Concomitant]
  9. ROSIGLITAZONE [Concomitant]

REACTIONS (7)
  - DIALYSIS [None]
  - DIZZINESS [None]
  - ELECTROMECHANICAL DISSOCIATION [None]
  - HYPERKALAEMIA [None]
  - MALAISE [None]
  - RENAL FAILURE ACUTE [None]
  - RESUSCITATION [None]
